FAERS Safety Report 8598327-5 (Version None)
Quarter: 2012Q3

REPORT INFORMATION
  Report Type: 
  Country: None (occurrence: None)
  Receive Date: 20120816
  Receipt Date: 20120806
  Transmission Date: 20120928
  Serious: Yes (Hospitalization)
  Sender: FDA-Public Use
  Company Number: JP-TEVA-352486ISR

PATIENT
  Age: 3 Year
  Sex: Male

DRUGS (6)
  1. CISPLATIN [Suspect]
     Dosage: 18 MG/M 2 FOR 5 DAYS ON DAYS 1 TO 5
     Route: 065
  2. VINCRISTINE [Suspect]
     Dosage: 1.5 MG/M2 FOR 1 DAY ON DAY 1
     Route: 065
  3. ALLOPURINOL [Concomitant]
     Indication: PROPHYLAXIS
     Dosage: 300 MG/M2/DAY
     Route: 065
  4. THP-ADRIAMYCIN [Suspect]
     Dosage: 25 MG/M2 FOR 1 DAY ON DAY 3
     Route: 065
  5. CYCLOPHOSPHAMIDE [Suspect]
     Dosage: 1200 MG/M2 FOR 1 DAY ON DAY 1
     Route: 065
  6. DALTEPARIN SODIUM [Concomitant]
     Indication: PROPHYLAXIS
     Route: 041

REACTIONS (1)
  - HISTIOCYTOSIS HAEMATOPHAGIC [None]
